FAERS Safety Report 7459691-3 (Version None)
Quarter: 2011Q2

REPORT INFORMATION
  Report Type: 
  Country: None (occurrence: None)
  Receive Date: 20110504
  Receipt Date: 20110504
  Transmission Date: 20111010
  Serious: Yes (Hospitalization)
  Sender: FDA-Public Use
  Company Number: None

PATIENT
  Age: 8 Month
  Sex: Male
  Weight: 10.2513 kg

DRUGS (1)
  1. HUMPHY'S TEETHING TABLETS [Suspect]
     Indication: CONVULSION
     Dosage: 6 TABLETS TOTAL OVER 5 DAY PERIOD OTHER  AS NEEDED FOR TEETHING
     Route: 050
     Dates: start: 20110409, end: 20110413

REACTIONS (1)
  - CONVULSION [None]
